FAERS Safety Report 16326709 (Version 1)
Quarter: 2019Q2

REPORT INFORMATION
  Report Type: Spontaneous
  Country: PL (occurrence: PL)
  Receive Date: 20190517
  Receipt Date: 20190517
  Transmission Date: 20190711
  Serious: Yes (Other)
  Sender: FDA-Public Use
  Company Number: PL-ASTRAZENECA-2019SE72736

PATIENT
  Age: 63 Year
  Sex: Male

DRUGS (1)
  1. FORXIGA [Suspect]
     Active Substance: DAPAGLIFLOZIN
     Dosage: 10.0MG UNKNOWN
     Route: 048
     Dates: start: 20160113

REACTIONS (3)
  - Pain in extremity [Unknown]
  - Extremity necrosis [Unknown]
  - Skin discolouration [Unknown]

NARRATIVE: CASE EVENT DATE: 201901
